FAERS Safety Report 7899327-0 (Version None)
Quarter: 2011Q4

REPORT INFORMATION
  Report Type: 
  Country: None (occurrence: None)
  Receive Date: 20111107
  Receipt Date: 20110913
  Transmission Date: 20120403
  Serious: No
  Sender: FDA-Public Use
  Company Number: US-AMGEN-USASP2011047003

PATIENT
  Age: 32 Year
  Sex: Male

DRUGS (3)
  1. ENBREL [Suspect]
     Indication: RHEUMATOID ARTHRITIS
     Dosage: 50 MG, QWK
     Dates: start: 20110630
  2. METHOTREXATE [Concomitant]
     Dates: start: 20110201
  3. ANTIBIOTIC [Concomitant]
     Indication: BRONCHITIS

REACTIONS (3)
  - RHEUMATOID ARTHRITIS [None]
  - INJECTION SITE PAIN [None]
  - BRONCHITIS [None]
